FAERS Safety Report 13681274 (Version 1)
Quarter: 2017Q2

REPORT INFORMATION
  Report Type: Spontaneous
  Country: US (occurrence: US)
  Receive Date: 20170623
  Receipt Date: 20170623
  Transmission Date: 20170830
  Serious: No
  Sender: FDA-Public Use
  Company Number: US-PFIZER INC-2017273804

PATIENT
  Age: 32 Year
  Sex: Female

DRUGS (1)
  1. COLESTIPOL HCL [Suspect]
     Active Substance: COLESTIPOL HYDROCHLORIDE
     Indication: DIARRHOEA
     Dosage: 1 G ONE TABLET TWICE A DAY

REACTIONS (4)
  - Product size issue [Unknown]
  - Product use in unapproved indication [Unknown]
  - Dysphagia [Unknown]
  - Product use complaint [Unknown]
